FAERS Safety Report 5881438-2 (Version None)
Quarter: 2008Q3

REPORT INFORMATION
  Report Type: 
  Country: None (occurrence: None)
  Receive Date: 20080910
  Receipt Date: 20080826
  Transmission Date: 20090109
  Serious: Yes (Hospitalization)
  Sender: FDA-Public Use
  Company Number: 95302

PATIENT
  Age: 29 Year
  Sex: Female

DRUGS (2)
  1. ACETAMINOPHEN/UNKNOWN [Suspect]
     Indication: OVERDOSE
     Dosage: 48 GRAMS
  2. CODEINE/UNKNOWN [Suspect]
     Indication: OVERDOSE

REACTIONS (2)
  - INTERNATIONAL NORMALISED RATIO INCREASED [None]
  - OVERDOSE [None]
